FAERS Safety Report 5498676-3 (Version None)
Quarter: 2007Q4

REPORT INFORMATION
  Report Type: 
  Country: None (occurrence: None)
  Receive Date: 20071024
  Receipt Date: 20071024
  Transmission Date: 20080405
  Serious: No
  Sender: FDA-Public Use
  Company Number: None

PATIENT
  Age: 46 Year
  Sex: Female
  Weight: 58.9676 kg

DRUGS (2)
  1. EFFEXOR XR [Suspect]
     Indication: MYELITIS TRANSVERSE
     Dosage: 37.5MG 3X''S PO
     Route: 048
     Dates: start: 20061119, end: 20061121
  2. EFFEXOR XR [Suspect]
     Indication: MYELOPATHY
     Dosage: 37.5MG 3X''S PO
     Route: 048
     Dates: start: 20061119, end: 20061121

REACTIONS (3)
  - MOTOR DYSFUNCTION [None]
  - MYELITIS TRANSVERSE [None]
  - SENSORY DISTURBANCE [None]
